FAERS Safety Report 7825228-X (Version None)
Quarter: 2011Q4

REPORT INFORMATION
  Report Type: 
  Country: None (occurrence: None)
  Receive Date: 20111019
  Receipt Date: 20050303
  Transmission Date: 20120403
  Serious: Yes (Hospitalization, Other)
  Sender: FDA-Public Use
  Company Number: PHHY2005CH04254

PATIENT
  Age: 86 Year
  Sex: Male

DRUGS (10)
  1. TOLTERODINE TARTRATE [Concomitant]
  2. GLUCOPHAGE [Concomitant]
  3. ZOCOR [Concomitant]
  4. AMOXICILLIN AND CLAVULANATE POTASSIUM [Suspect]
     Indication: BRONCHITIS
     Route: 048
     Dates: start: 20050209, end: 20050213
  5. IRBESARTAN AND HYDROCHLOROTHIAZIDE [Suspect]
     Dosage: 150 MG, QD
     Route: 048
     Dates: end: 20050213
  6. CORDARONE [Concomitant]
  7. PLAVIX [Concomitant]
  8. HUMALOG [Concomitant]
  9. METOPROLOL TARTRATE [Concomitant]
  10. LEVOTHYROXINE SODIUM [Concomitant]

REACTIONS (11)
  - SOMNOLENCE [None]
  - GENERAL PHYSICAL HEALTH DETERIORATION [None]
  - HYPONATRAEMIA [None]
  - CONFUSIONAL STATE [None]
  - URINARY INCONTINENCE [None]
  - INAPPROPRIATE ANTIDIURETIC HORMONE SECRETION [None]
  - ANTIDIURETIC HORMONE ABNORMALITY [None]
  - PLEOCYTOSIS [None]
  - ENCEPHALITIS [None]
  - VOMITING [None]
  - MENINGITIS ASEPTIC [None]
